FAERS Safety Report 8464992-6 (Version None)
Quarter: 2012Q2

REPORT INFORMATION
  Report Type: 
  Country: None (occurrence: None)
  Receive Date: 20120626
  Receipt Date: 20120618
  Transmission Date: 20120825
  Serious: Yes (Other)
  Sender: FDA-Public Use
  Company Number: US-ASTELLAS-2012US005557

PATIENT
  Sex: Male

DRUGS (1)
  1. TARCEVA [Suspect]
     Indication: PRODUCT USED FOR UNKNOWN INDICATION
     Dosage: UNK
     Route: 048
     Dates: end: 20120401

REACTIONS (7)
  - DYSPEPSIA [None]
  - FATIGUE [None]
  - REHABILITATION THERAPY [None]
  - ACNE [None]
  - DIARRHOEA [None]
  - ADVERSE REACTION [None]
  - HAEMATOCHEZIA [None]
